FAERS Safety Report 6325533-2 (Version None)
Quarter: 2009Q3

REPORT INFORMATION
  Report Type: 
  Country: None (occurrence: None)
  Receive Date: 20090824
  Receipt Date: 20090710
  Transmission Date: 20100115
  Serious: No
  Sender: FDA-Public Use
  Company Number: US-ABBOTT-09P-163-0585139-00

PATIENT
  Sex: Female
  Weight: 56.296 kg

DRUGS (5)
  1. NIASPAN [Suspect]
     Indication: BLOOD CHOLESTEROL INCREASED
     Dosage: DAILY AT HOUR OF SLEEP
     Route: 048
     Dates: start: 20090301, end: 20090601
  2. NIASPAN [Suspect]
     Indication: FAMILIAL RISK FACTOR
     Dosage: DAILY AT HOUR OF SLEEP
     Route: 048
     Dates: start: 20090601
  3. COZAAR [Concomitant]
     Indication: HYPERTENSION
     Route: 048
  4. ISTALOL [Concomitant]
     Indication: GLAUCOMA
     Route: 047
  5. LUMIGAN [Concomitant]
     Indication: GLAUCOMA
     Dosage: TWICE DAILY, IN AM AND PM
     Route: 048

REACTIONS (3)
  - DIZZINESS [None]
  - FEELING ABNORMAL [None]
  - PRURITUS [None]
